FAERS Safety Report 5045008-0 (Version None)
Quarter: 2006Q3

REPORT INFORMATION
  Report Type: 
  Country: None (occurrence: None)
  Receive Date: 20060707
  Receipt Date: 20060420
  Transmission Date: 20061208
  Serious: Yes (Death)
  Sender: FDA-Public Use
  Company Number: PHBS2006JP05953

PATIENT
  Age: 68 Year
  Sex: Male

DRUGS (14)
  1. VOLTAREN [Suspect]
     Indication: TOOTHACHE
     Dosage: 25 MG, ONCE/SINGLE
     Route: 054
     Dates: start: 20060414, end: 20060414
  2. ENSURE [Concomitant]
     Route: 048
  3. WARFARIN SODIUM [Concomitant]
     Route: 048
  4. D ALFA [Concomitant]
     Route: 048
  5. CYANOCOBALAMIN [Concomitant]
     Route: 048
  6. GASCON [Concomitant]
     Route: 048
  7. GASMOTIN [Concomitant]
     Route: 048
  8. MUCOSOLATE [Concomitant]
     Route: 048
  9. SIGMART [Concomitant]
     Route: 048
  10. GLYCLAMIN [Concomitant]
     Route: 048
  11. LOXOPROFEN SODIUM [Concomitant]
     Route: 048
     Dates: start: 20060413, end: 20060424
  12. HARNAL [Concomitant]
     Route: 048
     Dates: end: 20060420
  13. OMEPRAL [Concomitant]
     Route: 048
     Dates: end: 20060420
  14. SELOKEN [Concomitant]
     Route: 048
     Dates: end: 20060420

REACTIONS (20)
  - ANAPHYLACTIC SHOCK [None]
  - BLOOD GLUCOSE INCREASED [None]
  - BLOOD PH DECREASED [None]
  - BLOOD PRESSURE IMMEASURABLE [None]
  - CARDIAC ARREST [None]
  - CARDIO-RESPIRATORY ARREST [None]
  - DYSPNOEA [None]
  - ELECTROMECHANICAL DISSOCIATION [None]
  - HAEMATOCRIT DECREASED [None]
  - HAEMOGLOBIN DECREASED [None]
  - INTUBATION [None]
  - PCO2 DECREASED [None]
  - PLATELET COUNT DECREASED [None]
  - PO2 INCREASED [None]
  - PROTHROMBIN TIME PROLONGED [None]
  - PRURITUS [None]
  - PULMONARY VALVE STENOSIS [None]
  - THROAT IRRITATION [None]
  - VENTRICULAR FIBRILLATION [None]
  - VENTRICULAR TACHYCARDIA [None]
